FAERS Safety Report 8399818-2 (Version None)
Quarter: 2012Q2

REPORT INFORMATION
  Report Type: 
  Country: None (occurrence: None)
  Receive Date: 20120531
  Receipt Date: 20120518
  Transmission Date: 20120825
  Serious: Yes (Hospitalization, Other)
  Sender: FDA-Public Use
  Company Number: GB-BAUSCH-2012BL003360

PATIENT
  Age: 63 Year
  Sex: Female

DRUGS (8)
  1. ACYCLOVIR [Concomitant]
     Indication: PROPHYLAXIS
     Dates: start: 20120418
  2. LANSOPRAZOLE [Concomitant]
     Indication: PRODUCT USED FOR UNKNOWN INDICATION
     Route: 048
     Dates: start: 20111101
  3. METOCLOPRAMIDE [Concomitant]
     Indication: PRODUCT USED FOR UNKNOWN INDICATION
  4. ALLOPURINOL [Concomitant]
     Indication: TUMOUR LYSIS SYNDROME
     Route: 048
     Dates: start: 20111101
  5. REVLIMID [Suspect]
     Indication: MULTIPLE MYELOMA
     Route: 048
     Dates: start: 20111101
  6. FENTANYL-100 [Concomitant]
     Indication: PRODUCT USED FOR UNKNOWN INDICATION
     Route: 062
     Dates: start: 20120401
  7. FLUCONAZOLE [Concomitant]
     Indication: PROPHYLAXIS
     Dates: start: 20120418
  8. DEXAMETHASONE [Suspect]
     Indication: MULTIPLE MYELOMA
     Route: 065
     Dates: start: 20111101

REACTIONS (2)
  - NEUTROPENIC SEPSIS [None]
  - PNEUMONIA [None]
